FAERS Safety Report 9193673 (Version 4)
Quarter: 2013Q4

REPORT INFORMATION
  Report Type: Spontaneous
  Country: JP (occurrence: JP)
  Receive Date: 20130327
  Receipt Date: 20131118
  Transmission Date: 20140711
  Serious: Yes (Hospitalization)
  Sender: FDA-Public Use
  Company Number: JP-GLAXOSMITHKLINE-B0878004A

PATIENT
  Age: 79 Year
  Sex: Male
  Weight: 48 kg

DRUGS (4)
  1. VALTREX [Suspect]
     Indication: HERPES ZOSTER
     Dosage: 1000MG THREE TIMES PER DAY
     Route: 048
     Dates: start: 20130318, end: 20130320
  2. LYRICA [Concomitant]
     Indication: ANALGESIC THERAPY
     Dosage: 25MG THREE TIMES PER DAY
     Route: 048
     Dates: start: 20130318
  3. LOXONIN [Concomitant]
     Indication: ANALGESIC THERAPY
     Dosage: 60MG THREE TIMES PER DAY
     Route: 048
     Dates: start: 20130318
  4. OLMETEC [Concomitant]
     Indication: HYPERTENSION
     Dosage: 20MG PER DAY
     Route: 048

REACTIONS (9)
  - Renal failure acute [Recovering/Resolving]
  - Altered state of consciousness [Recovering/Resolving]
  - Renal impairment [Unknown]
  - Myelodysplastic syndrome [Unknown]
  - Red blood cell count decreased [Unknown]
  - Prothrombin time prolonged [Recovering/Resolving]
  - Anaemia [Unknown]
  - Hyperkalaemia [Unknown]
  - Platelet count decreased [Recovering/Resolving]
